FAERS Safety Report 5926463-8 (Version None)
Quarter: 2008Q4

REPORT INFORMATION
  Report Type: 
  Country: None (occurrence: None)
  Receive Date: 20081022
  Receipt Date: 20081010
  Transmission Date: 20090506
  Serious: Yes (Hospitalization)
  Sender: FDA-Public Use
  Company Number: PHHY2008GB18807

PATIENT
  Sex: Female

DRUGS (4)
  1. CLOZARIL [Suspect]
     Indication: SCHIZOPHRENIA
     Dosage: 500 MG / DAY
     Dates: start: 20021018
  2. VALPROATE SODIUM [Concomitant]
     Indication: EPILEPSY
     Dosage: 1200 MG/DAY
     Dates: start: 20061129
  3. ESCITALOPRAM [Concomitant]
     Indication: OBSESSIVE-COMPULSIVE DISORDER
     Dosage: 30 MG/DAY
     Dates: start: 20080724
  4. HYOSCINE HBR HYT [Concomitant]
     Indication: SALIVARY HYPERSECRETION
     Dosage: 600 UG/DAY
     Route: 048
     Dates: start: 20080801

REACTIONS (1)
  - OBSESSIVE-COMPULSIVE DISORDER [None]
